FAERS Safety Report 15057465 (Version 2)
Quarter: 2018Q2

REPORT INFORMATION
  Report Type: Spontaneous
  Country: FI (occurrence: FI)
  Receive Date: 20180625
  Receipt Date: 20180629
  Transmission Date: 20180711
  Serious: Yes (Other)
  Sender: FDA-Public Use
  Company Number: FI-AMGEN-FINSP2018076774

PATIENT
  Age: 72 Year
  Sex: Male
  Weight: 111 kg

DRUGS (18)
  1. ARANESP [Suspect]
     Active Substance: DARBEPOETIN ALFA
     Dosage: 100 MUG, QWK
     Route: 042
     Dates: start: 20180512
  2. ETALPHA [Concomitant]
     Active Substance: ALFACALCIDOL
     Dosage: 0.25 MUG, QD
  3. INNOHEP [Concomitant]
     Active Substance: TINZAPARIN SODIUM
     Dosage: 4500 IU, UNK
     Route: 042
  4. ARANESP [Suspect]
     Active Substance: DARBEPOETIN ALFA
     Indication: NEPHROGENIC ANAEMIA
     Dosage: 80 MUG, Q2WK
     Route: 058
     Dates: start: 20150623
  5. DANAPAROID SODIUM [Concomitant]
     Active Substance: DANAPAROID SODIUM
     Dosage: 2500 IU, UNK
     Route: 042
  6. SIMVASTATIN RATIOPHARM [Concomitant]
     Active Substance: SIMVASTATIN
     Dosage: 20 MG, QD
  7. EMCONCOR [Concomitant]
     Active Substance: BISOPROLOL FUMARATE
     Dosage: 5 MG (HALF TABLET X 2), BID
  8. ARANESP [Suspect]
     Active Substance: DARBEPOETIN ALFA
     Dosage: 60 MUG, QWK
     Route: 058
  9. RENAVIT [Concomitant]
     Dosage: 1 DF, QD
  10. PLAVIX [Concomitant]
     Active Substance: CLOPIDOGREL BISULFATE
     Dosage: 75 MG, QD
  11. SYMBICORT [Concomitant]
     Active Substance: BUDESONIDE\FORMOTEROL FUMARATE DIHYDRATE
     Dosage: 2 DF (POWDER), BID
     Route: 045
  12. ARANESP [Suspect]
     Active Substance: DARBEPOETIN ALFA
     Dosage: 100 MUG, QWK
     Route: 058
     Dates: start: 20180428, end: 2018
  13. CALCICHEW-D3 FORTE [Concomitant]
     Active Substance: CALCIUM\CHOLECALCIFEROL
     Dosage: 500 MG/10 MUG, TID
  14. FURESIS [Concomitant]
     Active Substance: FUROSEMIDE
     Dosage: 2 DF (2 TABLETS), BID
  15. ARANESP [Suspect]
     Active Substance: DARBEPOETIN ALFA
     Dosage: 40 MUG, Q4WK
     Route: 058
     Dates: start: 201612
  16. SPIRIVA [Concomitant]
     Active Substance: TIOTROPIUM BROMIDE MONOHYDRATE
     Dosage: 18 MUG, QD
  17. MONTELUKAST ACTAVIS [Concomitant]
     Active Substance: MONTELUKAST SODIUM
     Dosage: 10 MG, QD
  18. OMEPRAZOL RATIOPHARM [Concomitant]
     Active Substance: OMEPRAZOLE
     Dosage: 40 MG, AS NECESSARY

REACTIONS (3)
  - Angioplasty [Unknown]
  - Anaemia [Recovering/Resolving]
  - Thrombosis [Unknown]

NARRATIVE: CASE EVENT DATE: 20180311
